FAERS Safety Report 8966726 (Version 1)
Quarter: 2012Q4

REPORT INFORMATION
  Report Type: Report from Study
  Country: CA (occurrence: CA)
  Receive Date: 20121217
  Receipt Date: 20121217
  Transmission Date: 20130627
  Serious: Yes (Other)
  Sender: FDA-Public Use
  Company Number: CA-JNJFOC-20121204346

PATIENT
  Sex: Female
  Weight: 80.3 kg

DRUGS (9)
  1. REMICADE [Suspect]
     Indication: RHEUMATOID ARTHRITIS
     Route: 042
     Dates: start: 20020904
  2. REMICADE [Suspect]
     Indication: RHEUMATOID ARTHRITIS
     Route: 042
     Dates: start: 20121025
  3. DICLOFENAC [Concomitant]
     Route: 065
  4. METOPROLOL [Concomitant]
     Route: 065
  5. FUROSEMIDE [Concomitant]
     Route: 065
  6. ASA [Concomitant]
     Route: 065
  7. TYLENOL [Concomitant]
     Route: 065
  8. MISOPROSTOL [Concomitant]
     Route: 065
  9. LEFLUNOMIDE [Concomitant]
     Route: 048

REACTIONS (1)
  - Eye swelling [Recovering/Resolving]
